FAERS Safety Report 15371377 (Version 2)
Quarter: 2018Q3

REPORT INFORMATION
  Report Type: Spontaneous
  Country: DE (occurrence: DE)
  Receive Date: 20180911
  Receipt Date: 20180925
  Transmission Date: 20181010
  Serious: Yes (Death, Hospitalization, Other)
  Sender: FDA-Public Use
  Company Number: DE-MYLANLABS-PHBS2003DE11710

PATIENT
  Age: 78 Year
  Sex: Female
  Weight: 80 kg

DRUGS (8)
  1. NORVASC [Suspect]
     Active Substance: AMLODIPINE BESYLATE
     Indication: PRODUCT USED FOR UNKNOWN INDICATION
     Dosage: 430 MG, ONCE/SINGLE
  2. CIBACEN [Suspect]
     Active Substance: BENAZEPRIL HYDROCHLORIDE
     Indication: PRODUCT USED FOR UNKNOWN INDICATION
     Dosage: 250 MG, ONCE/SINGLE
     Route: 065
  3. REMERGIL [Suspect]
     Active Substance: MIRTAZAPINE
     Indication: PRODUCT USED FOR UNKNOWN INDICATION
     Dosage: 600 MG, ONCE/SINGLE
     Route: 065
  4. REMERGIL [Suspect]
     Active Substance: MIRTAZAPINE
     Dosage: 600 MG, UNK
     Route: 048
  5. CONPIN [Suspect]
     Active Substance: ISOSORBIDE MONONITRATE
     Indication: PRODUCT USED FOR UNKNOWN INDICATION
     Dosage: 2 G, ONCE/SINGLE
     Route: 065
  6. NORVASC [Suspect]
     Active Substance: AMLODIPINE BESYLATE
     Dosage: 430 MG, UNK
     Route: 048
  7. CONPIN [Suspect]
     Active Substance: ISOSORBIDE MONONITRATE
     Dosage: 2 G, UNK
     Route: 048
  8. CIBACEN [Suspect]
     Active Substance: BENAZEPRIL HYDROCHLORIDE
     Dosage: 250 MG, UNK
     Route: 048

REACTIONS (5)
  - Completed suicide [Fatal]
  - Cardiac failure [Fatal]
  - Intentional overdose [Fatal]
  - Vasodilatation [Fatal]
  - Intestinal ischaemia [Fatal]
